FAERS Safety Report 17763304 (Version 1)
Quarter: 2020Q2

REPORT INFORMATION
  Report Type: Spontaneous
  Country: CA (occurrence: CA)
  Receive Date: 20200509
  Receipt Date: 20200509
  Transmission Date: 20200714
  Serious: Yes (Death)
  Sender: FDA-Public Use
  Company Number: CA-ROCHE-2595123

PATIENT
  Sex: Female
  Weight: 55 kg

DRUGS (12)
  1. CLOPIDOGREL [Concomitant]
     Active Substance: CLOPIDOGREL BISULFATE
     Route: 065
  2. CRANBERRY [VACCINIUM SPP.] [Concomitant]
     Route: 065
  3. ENBREL [Concomitant]
     Active Substance: ETANERCEPT
     Route: 065
  4. ACETAMINOPHEN. [Concomitant]
     Active Substance: ACETAMINOPHEN
     Route: 065
  5. CIPROFLOXACIN. [Concomitant]
     Active Substance: CIPROFLOXACIN
     Route: 065
  6. ESOMEPRAZOLE. [Suspect]
     Active Substance: ESOMEPRAZOLE MAGNESIUM
     Indication: GASTROOESOPHAGEAL REFLUX DISEASE
     Route: 065
  7. ACTONEL [Concomitant]
     Active Substance: RISEDRONATE SODIUM
     Route: 065
  8. MACROBID [Suspect]
     Active Substance: NITROFURANTOIN\NITROFURANTOIN MONOHYDRATE
     Indication: CYSTITIS
     Route: 065
  9. RITUXAN [Suspect]
     Active Substance: RITUXIMAB
     Indication: RHEUMATOID ARTHRITIS
     Route: 041
  10. BISOPROLOL [Suspect]
     Active Substance: BISOPROLOL
     Indication: CARDIAC DISORDER
     Route: 048
  11. DOMPERIDONE [Concomitant]
     Active Substance: DOMPERIDONE
     Route: 065
  12. DIPHENHYDRAMINE. [Concomitant]
     Active Substance: DIPHENHYDRAMINE
     Route: 065

REACTIONS (29)
  - Drug hypersensitivity [Fatal]
  - Dyspnoea [Fatal]
  - Fall [Fatal]
  - Oxygen saturation decreased [Fatal]
  - Vomiting [Fatal]
  - Syncope [Fatal]
  - Abdominal pain [Fatal]
  - Cystitis [Fatal]
  - Heart rate increased [Fatal]
  - Pain [Fatal]
  - Respiratory rate increased [Fatal]
  - Chest injury [Fatal]
  - Joint swelling [Fatal]
  - Gastroenteritis viral [Fatal]
  - Gastrooesophageal reflux disease [Fatal]
  - Pneumonia [Fatal]
  - Urinary tract infection [Fatal]
  - C-reactive protein increased [Fatal]
  - Cardiac disorder [Fatal]
  - Decreased appetite [Fatal]
  - Fluid retention [Fatal]
  - Musculoskeletal stiffness [Fatal]
  - Arthralgia [Fatal]
  - Interstitial lung disease [Fatal]
  - Nausea [Fatal]
  - Swelling [Fatal]
  - Dyspnoea exertional [Fatal]
  - Inflammation [Fatal]
  - Weight decreased [Fatal]
